FAERS Safety Report 11602232 (Version 1)
Quarter: 2015Q4

REPORT INFORMATION
  Report Type: Spontaneous
  Country: US (occurrence: US)
  Receive Date: 20151006
  Receipt Date: 20151006
  Transmission Date: 20160304
  Serious: No
  Sender: FDA-Public Use
  Company Number: US-AMGEN-USASP2015042172

PATIENT
  Sex: Female

DRUGS (5)
  1. PROLIA [Suspect]
     Active Substance: DENOSUMAB
     Indication: PRODUCT USED FOR UNKNOWN INDICATION
     Dosage: UNK
     Route: 065
  2. VOLTAREN [Concomitant]
     Active Substance: DICLOFENAC SODIUM
     Indication: SENSORY LOSS
  3. CALCIUM [Concomitant]
     Active Substance: CALCIUM
  4. VOLTAREN [Concomitant]
     Active Substance: DICLOFENAC SODIUM
     Indication: PAIN
  5. VITAMIN D                          /00107901/ [Concomitant]
     Active Substance: ERGOCALCIFEROL
     Dosage: 500 MG, BID

REACTIONS (8)
  - Adverse drug reaction [Unknown]
  - Myalgia [Unknown]
  - Muscle spasms [Unknown]
  - Gait disturbance [Unknown]
  - Arthralgia [Unknown]
  - Walking aid user [Unknown]
  - Sensory disturbance [Unknown]
  - Pain in extremity [Unknown]
